FAERS Safety Report 16240167 (Version 1)
Quarter: 2019Q2

REPORT INFORMATION
  Report Type: Spontaneous
  Country: US (occurrence: US)
  Receive Date: 20190425
  Receipt Date: 20190425
  Transmission Date: 20190711
  Serious: Yes (Death)
  Sender: FDA-Public Use
  Company Number: US-BAUSCH-BL-2019-011763

PATIENT

DRUGS (7)
  1. PRILOSEC [Suspect]
     Active Substance: OMEPRAZOLE MAGNESIUM
     Indication: PRODUCT USED FOR UNKNOWN INDICATION
     Dosage: START DATE: APPROXIMATELY IN 1999
     Route: 065
     Dates: end: 2017
  2. PRILOSEC OTC [Suspect]
     Active Substance: OMEPRAZOLE MAGNESIUM
     Indication: PRODUCT USED FOR UNKNOWN INDICATION
     Dosage: START DATE: APPROXIMATELY IN 1999
     Route: 065
     Dates: end: 2017
  3. DEXILANT [Suspect]
     Active Substance: DEXLANSOPRAZOLE
     Indication: PRODUCT USED FOR UNKNOWN INDICATION
     Dosage: START DATE: APPROXIMATELY IN 1999
     Route: 065
     Dates: end: 2017
  4. ZEGERID [Suspect]
     Active Substance: OMEPRAZOLE\SODIUM BICARBONATE
     Indication: PRODUCT USED FOR UNKNOWN INDICATION
     Dosage: START DATE: APPROXIMATELY IN 1999
     Route: 065
     Dates: end: 2017
  5. KAPIDEX [Suspect]
     Active Substance: DEXLANSOPRAZOLE
     Indication: PRODUCT USED FOR UNKNOWN INDICATION
     Dosage: START DATE: APPROXIMATELY IN 1999
     Route: 065
     Dates: end: 2017
  6. NEXIUM [Suspect]
     Active Substance: ESOMEPRAZOLE MAGNESIUM
     Indication: PRODUCT USED FOR UNKNOWN INDICATION
     Dosage: START DATE: APPROXIMATELY IN 1999
     Route: 065
     Dates: end: 2017
  7. NEXIUM 24HR [Suspect]
     Active Substance: ESOMEPRAZOLE MAGNESIUM
     Indication: PRODUCT USED FOR UNKNOWN INDICATION
     Dosage: START DATE: APPROXIMATELY IN 1999
     Route: 065
     Dates: end: 2017

REACTIONS (3)
  - Renal failure [Fatal]
  - Chronic kidney disease [Fatal]
  - Acute kidney injury [Fatal]
